FAERS Safety Report 6008306-X (Version None)
Quarter: 2008Q4

REPORT INFORMATION
  Report Type: 
  Country: None (occurrence: None)
  Receive Date: 20081217
  Receipt Date: 20070719
  Transmission Date: 20090506
  Serious: Yes (Other)
  Sender: FDA-Public Use
  Company Number: US-BAXTER-2008BH010202

PATIENT
  Age: 46 Year
  Sex: Female

DRUGS (4)
  1. POLYGAM S/D [Suspect]
     Indication: PRIMARY IMMUNODEFICIENCY SYNDROME
     Route: 042
  2. SANDOGLOBULIN [Suspect]
     Indication: PRIMARY IMMUNODEFICIENCY SYNDROME
     Route: 042
  3. DIPHENHYDRAMINE HCL [Concomitant]
     Indication: PREMEDICATION
     Route: 065
  4. IBUPROFEN [Concomitant]
     Indication: PREMEDICATION
     Route: 065

REACTIONS (3)
  - ANAPHYLACTOID REACTION [None]
  - DRUG INTOLERANCE [None]
  - MENINGITIS ASEPTIC [None]
